FAERS Safety Report 24709608 (Version 1)
Quarter: 2024Q4

REPORT INFORMATION
  Report Type: Spontaneous
  Country: US (occurrence: US)
  Receive Date: 20241209
  Receipt Date: 20241209
  Transmission Date: 20250114
  Serious: Yes (Death, Other)
  Sender: Unknown Manufacturer
  Company Number: US-KOANAAP-SML-US-2024-01189

PATIENT
  Age: 63 Year
  Sex: Female

DRUGS (3)
  1. IMATINIB [Suspect]
     Active Substance: IMATINIB
     Indication: Gastrointestinal stromal tumour
     Dosage: IMATINIB MONOTHERAPY FOR 3 MONTHS
  2. SOFOSBUVIR [Concomitant]
     Active Substance: SOFOSBUVIR
     Indication: Hepatitis C
  3. LEDIPASVIR [Concomitant]
     Active Substance: LEDIPASVIR
     Indication: Hepatitis C

REACTIONS (2)
  - Disease progression [Fatal]
  - Drug ineffective [Unknown]
